FAERS Safety Report 8335828-9 (Version None)
Quarter: 2012Q2

REPORT INFORMATION
  Report Type: 
  Country: None (occurrence: None)
  Receive Date: 20120501
  Receipt Date: 20120501
  Transmission Date: 20120825
  Serious: Yes (Hospitalization)
  Sender: FDA-Public Use
  Company Number: None

PATIENT
  Age: 80 Year
  Sex: Female
  Weight: 63.5 kg

DRUGS (11)
  1. M.V.I. [Concomitant]
  2. COUMADIN [Suspect]
     Indication: PULMONARY EMBOLISM
     Dosage: 3.5 MG DAILY PO CHRONIC
     Route: 048
  3. TRAMADOL HYDROCHLORIDE [Concomitant]
  4. PREDNISONE [Concomitant]
  5. CALCIUM CARBONATE [Concomitant]
  6. FOLIC ACID [Concomitant]
  7. FOSAMAX [Concomitant]
  8. VIT B COMPLEX [Concomitant]
  9. LIDODERM [Concomitant]
  10. ARICEPT [Concomitant]
  11. ZANTAC [Concomitant]

REACTIONS (2)
  - FALL [None]
  - BACK PAIN [None]
